FAERS Safety Report 18179880 (Version 1)
Quarter: 2020Q3

REPORT INFORMATION
  Report Type: Spontaneous
  Country: US (occurrence: US)
  Receive Date: 20200821
  Receipt Date: 20200821
  Transmission Date: 20201103
  Serious: Yes (Other)
  Sender: FDA-Public Use
  Company Number: US-AMGEN-USASP2020132799

PATIENT
  Sex: Female

DRUGS (2)
  1. PROLIA [Suspect]
     Active Substance: DENOSUMAB
     Indication: PRODUCT USED FOR UNKNOWN INDICATION
     Dosage: UNK
     Route: 065
     Dates: start: 2020
  2. METHOTREXATE. [Concomitant]
     Active Substance: METHOTREXATE
     Dosage: UNK

REACTIONS (2)
  - Gastrointestinal haemorrhage [Unknown]
  - Malaise [Unknown]

NARRATIVE: CASE EVENT DATE: 2020
